FAERS Safety Report 6654938-5 (Version None)
Quarter: 2010Q1

REPORT INFORMATION
  Report Type: 
  Country: None (occurrence: None)
  Receive Date: 20100329
  Receipt Date: 20100318
  Transmission Date: 20100710
  Serious: No
  Sender: FDA-Public Use
  Company Number: US-BIOGENIDEC-2010BI009178

PATIENT
  Age: 45 Year
  Sex: Female

DRUGS (6)
  1. AVONEX [Suspect]
     Indication: MULTIPLE SCLEROSIS
     Route: 030
     Dates: start: 19960701
  2. AVONEX [Suspect]
     Route: 030
  3. SIMPLY SALINE [Concomitant]
     Indication: TRACHEOBRONCHITIS
  4. ACIPHEX [Concomitant]
     Indication: ABDOMINAL DISCOMFORT
  5. IMIPRAMINE [Concomitant]
     Indication: DEPRESSION
     Dates: start: 19870101
  6. ZYCAM [Concomitant]
     Indication: TRACHEOBRONCHITIS

REACTIONS (7)
  - DYSPHAGIA [None]
  - INFLUENZA LIKE ILLNESS [None]
  - MULTIPLE SCLEROSIS RELAPSE [None]
  - NEURALGIA [None]
  - SWELLING FACE [None]
  - TOOTH ABSCESS [None]
  - TOOTH EXTRACTION [None]
